FAERS Safety Report 17451428 (Version 2)
Quarter: 2023Q2

REPORT INFORMATION
  Report Type: Spontaneous
  Country: US (occurrence: US)
  Receive Date: 20200224
  Receipt Date: 20230526
  Transmission Date: 20230722
  Serious: No
  Sender: FDA-Public Use
  Company Number: US-PFIZER INC-2020078774

PATIENT
  Age: 69 Year
  Sex: Female

DRUGS (1)
  1. GLUCOTROL XL [Suspect]
     Active Substance: GLIPIZIDE
     Dosage: 10 MG, 2X/DAY

REACTIONS (1)
  - Off label use [Unknown]
